FAERS Safety Report 6657314-4 (Version None)
Quarter: 2010Q1

REPORT INFORMATION
  Report Type: 
  Country: None (occurrence: None)
  Receive Date: 20100330
  Receipt Date: 20100319
  Transmission Date: 20100710
  Serious: Yes (Hospitalization)
  Sender: FDA-Public Use
  Company Number: GB-JNJFOC-20100306285

PATIENT
  Age: 40 Year
  Sex: Male
  Weight: 82.2 kg

DRUGS (6)
  1. REMICADE [Suspect]
     Indication: CROHN'S DISEASE
     Route: 042
  2. REMICADE [Suspect]
     Route: 042
  3. CHLORPHENIRAMINE MALEATE [Suspect]
     Indication: PREMEDICATION
     Route: 042
  4. HYDROCORTISONE [Suspect]
     Indication: PREMEDICATION
  5. MESALAZINE [Concomitant]
     Indication: CROHN'S DISEASE
     Route: 048
  6. PREDNISOLONE [Concomitant]
     Indication: CROHN'S DISEASE
     Route: 048

REACTIONS (4)
  - BLOOD PRESSURE INCREASED [None]
  - DIZZINESS [None]
  - NAUSEA [None]
  - OXYGEN SATURATION DECREASED [None]
